FAERS Safety Report 13329408 (Version 1)
Quarter: 2017Q1

REPORT INFORMATION
  Report Type: Report from Study
  Country: CA (occurrence: CA)
  Receive Date: 20170313
  Receipt Date: 20170313
  Transmission Date: 20170428
  Serious: Yes (Other)
  Sender: FDA-Public Use
  Company Number: CA-REGENERON PHARMACEUTICALS, INC.-2017-12915

PATIENT

DRUGS (1)
  1. EYLEA [Suspect]
     Active Substance: AFLIBERCEPT
     Indication: DIABETIC RETINAL OEDEMA
     Dosage: OD (RIGHT EYE)
     Route: 031
     Dates: start: 20170222

REACTIONS (1)
  - Intra-ocular injection [Recovered/Resolved]

NARRATIVE: CASE EVENT DATE: 20170222
